FAERS Safety Report 16549182 (Version 2)
Quarter: 2020Q3

REPORT INFORMATION
  Report Type: Spontaneous
  Country: US (occurrence: US)
  Receive Date: 20190709
  Receipt Date: 20200803
  Transmission Date: 20201102
  Serious: Yes (Death, Other)
  Sender: FDA-Public Use
  Company Number: US-ASTRAZENECA-2019SE98082

PATIENT
  Age: 36 Year
  Sex: Male
  Weight: 77.1 kg

DRUGS (60)
  1. PREVACID [Suspect]
     Active Substance: LANSOPRAZOLE
     Route: 065
     Dates: start: 2001, end: 2009
  2. PREVACID [Suspect]
     Active Substance: LANSOPRAZOLE
     Route: 065
     Dates: start: 200112
  3. PROTONIX [Suspect]
     Active Substance: PANTOPRAZOLE SODIUM
     Route: 065
     Dates: start: 200210
  4. DULOXETINE. [Concomitant]
     Active Substance: DULOXETINE
  5. HYDROXYZINE [Concomitant]
     Active Substance: HYDROXYZINE HYDROCHLORIDE
  6. XARELTO [Concomitant]
     Active Substance: RIVAROXABAN
  7. PREDNISONE. [Concomitant]
     Active Substance: PREDNISONE
  8. SIMVASTATIN. [Concomitant]
     Active Substance: SIMVASTATIN
  9. COLACE [Concomitant]
     Active Substance: DOCUSATE SODIUM
  10. CYMBALTA [Concomitant]
     Active Substance: DULOXETINE HYDROCHLORIDE
  11. FLUDROCORTISONE [Concomitant]
     Active Substance: FLUDROCORTISONE
  12. LEVOTHYROXINE. [Concomitant]
     Active Substance: LEVOTHYROXINE
  13. CARDEC [Concomitant]
     Active Substance: CHLORPHENIRAMINE MALEATE\PHENYLEPHRINE HYDROCHLORIDE
  14. BIAXIN [Concomitant]
     Active Substance: CLARITHROMYCIN
  15. PREVACID [Suspect]
     Active Substance: LANSOPRAZOLE
     Route: 065
     Dates: start: 200205
  16. PREVACID [Suspect]
     Active Substance: LANSOPRAZOLE
     Route: 065
     Dates: start: 200910, end: 201001
  17. PRAZOSIN. [Concomitant]
     Active Substance: PRAZOSIN
     Indication: BLOOD PRESSURE ABNORMAL
     Dates: start: 2007, end: 2015
  18. POTASSIUM CHLORIDE. [Concomitant]
     Active Substance: POTASSIUM CHLORIDE
  19. TOPAMAX [Concomitant]
     Active Substance: TOPIRAMATE
  20. OYSTER [Concomitant]
     Active Substance: OYSTER, UNSPECIFIED
  21. PRILOSEC [Suspect]
     Active Substance: OMEPRAZOLE MAGNESIUM
     Dosage: GENERIC
     Route: 065
     Dates: start: 201002, end: 201101
  22. PREVACID [Suspect]
     Active Substance: LANSOPRAZOLE
     Route: 065
     Dates: start: 2011, end: 2015
  23. PREVACID [Suspect]
     Active Substance: LANSOPRAZOLE
     Route: 065
     Dates: start: 200607, end: 200902
  24. RANITIDINE. [Concomitant]
     Active Substance: RANITIDINE
     Dates: start: 200407
  25. QUETIAPINE. [Concomitant]
     Active Substance: QUETIAPINE
  26. ZITHROMAX [Concomitant]
     Active Substance: AZITHROMYCIN DIHYDRATE
  27. CLONAZEPAM. [Concomitant]
     Active Substance: CLONAZEPAM
  28. DITROPAN [Concomitant]
     Active Substance: OXYBUTYNIN CHLORIDE
  29. METOCLOPRAMIDE. [Concomitant]
     Active Substance: METOCLOPRAMIDE
  30. NEXIUM [Suspect]
     Active Substance: ESOMEPRAZOLE MAGNESIUM
     Route: 048
     Dates: start: 2001, end: 2009
  31. NEXIUM [Suspect]
     Active Substance: ESOMEPRAZOLE MAGNESIUM
     Route: 048
     Dates: start: 2011, end: 2015
  32. PRILOSEC [Suspect]
     Active Substance: OMEPRAZOLE MAGNESIUM
     Route: 048
     Dates: start: 20150903
  33. SIMVASTATIN. [Concomitant]
     Active Substance: SIMVASTATIN
     Indication: CHOLESTEROSIS
     Dates: start: 2010, end: 2015
  34. REGLAN [Concomitant]
     Active Substance: METOCLOPRAMIDE HYDROCHLORIDE
  35. FLOMAX [Concomitant]
     Active Substance: TAMSULOSIN HYDROCHLORIDE
  36. HYDROXYZINE [Concomitant]
     Active Substance: HYDROXYZINE HYDROCHLORIDE
  37. ZOFRAN [Concomitant]
     Active Substance: ONDANSETRON HYDROCHLORIDE
  38. ALBUTEROL. [Concomitant]
     Active Substance: ALBUTEROL
  39. AMBIEN [Concomitant]
     Active Substance: ZOLPIDEM TARTRATE
  40. SINGULAIR [Concomitant]
     Active Substance: MONTELUKAST SODIUM
  41. ULTRAM [Concomitant]
     Active Substance: TRAMADOL HYDROCHLORIDE
  42. PRILOSEC [Suspect]
     Active Substance: OMEPRAZOLE MAGNESIUM
     Dosage: GENERIC
     Route: 065
     Dates: start: 201502, end: 201505
  43. PREVACID [Suspect]
     Active Substance: LANSOPRAZOLE
     Route: 065
     Dates: start: 200201, end: 200205
  44. RANITIDINE. [Concomitant]
     Active Substance: RANITIDINE
     Dates: start: 200507, end: 200509
  45. SENNA [Concomitant]
     Active Substance: SENNA LEAF\SENNOSIDES\SENNOSIDES A AND B
  46. METOPROLOL TARTRATE. [Concomitant]
     Active Substance: METOPROLOL TARTRATE
  47. PRILOSEC [Suspect]
     Active Substance: OMEPRAZOLE MAGNESIUM
     Dosage: GENERIC
     Route: 065
     Dates: start: 201001
  48. PRILOSEC [Suspect]
     Active Substance: OMEPRAZOLE MAGNESIUM
     Dosage: GENERIC
     Route: 065
     Dates: start: 201102, end: 201410
  49. PREVACID [Suspect]
     Active Substance: LANSOPRAZOLE
     Route: 065
     Dates: start: 200302, end: 200303
  50. MELATONIN [Concomitant]
     Active Substance: MELATONIN
  51. DILAUDID [Concomitant]
     Active Substance: HYDROMORPHONE HYDROCHLORIDE
  52. ENULOSE [Concomitant]
     Active Substance: LACTULOSE
  53. NEXIUM [Suspect]
     Active Substance: ESOMEPRAZOLE MAGNESIUM
     Route: 048
     Dates: start: 20140405
  54. PREVACID [Suspect]
     Active Substance: LANSOPRAZOLE
     Route: 065
     Dates: start: 200903, end: 200909
  55. LYRICA [Concomitant]
     Active Substance: PREGABALIN
     Indication: PAIN
     Dates: start: 2006, end: 2015
  56. LEVOTHYROXINE. [Concomitant]
     Active Substance: LEVOTHYROXINE
  57. GABAPENTIN. [Concomitant]
     Active Substance: GABAPENTIN
  58. ZOCOR [Concomitant]
     Active Substance: SIMVASTATIN
  59. CLONAZEPAM. [Concomitant]
     Active Substance: CLONAZEPAM
  60. ERYTHROCIN [Concomitant]
     Active Substance: ERYTHROMYCIN LACTOBIONATE

REACTIONS (3)
  - Renal injury [Not Recovered/Not Resolved]
  - Acute kidney injury [Unknown]
  - Chronic kidney disease [Not Recovered/Not Resolved]

NARRATIVE: CASE EVENT DATE: 2013
